FAERS Safety Report 16523951 (Version 2)
Quarter: 2019Q3

REPORT INFORMATION
  Report Type: Spontaneous
  Country: CA (occurrence: CA)
  Receive Date: 20190703
  Receipt Date: 20190903
  Transmission Date: 20191004
  Serious: Yes (Other)
  Sender: FDA-Public Use
  Company Number: CA-CELLTRION INC.-2018CA024926

PATIENT

DRUGS (31)
  1. INFLECTRA [Suspect]
     Active Substance: INFLIXIMAB-DYYB
     Indication: COLITIS ULCERATIVE
     Dosage: 300 MG, UNK
     Route: 042
     Dates: start: 20181120, end: 20181121
  2. INFLECTRA [Suspect]
     Active Substance: INFLIXIMAB-DYYB
     Dosage: 300 MG, (EVERY 4 WEEKS)
     Route: 042
  3. INFLECTRA [Suspect]
     Active Substance: INFLIXIMAB-DYYB
     Dosage: UNK
     Route: 042
     Dates: start: 20190327
  4. CALCIUM CARBONATE. [Concomitant]
     Active Substance: CALCIUM CARBONATE
     Dosage: 1250 MG, 1 TABLET PER DAY 1X/DAY
  5. METHOTREXATE. [Concomitant]
     Active Substance: METHOTREXATE
     Dosage: 20 MG, WEEKLY
     Route: 048
  6. FOLATE [Concomitant]
     Active Substance: FOLATE SODIUM
     Dosage: 1 MG, DAILY
  7. INFLECTRA [Suspect]
     Active Substance: INFLIXIMAB-DYYB
     Dosage: 10 MG/KG, (EVERY) 0,2,6 AND 6 WEEKS, THEN 5MG/KG EVERY 4 WEEKS
     Route: 042
     Dates: start: 20181130
  8. PANTOPRAZOLE [Concomitant]
     Active Substance: PANTOPRAZOLE
     Dosage: 40 MG, DAILY
     Route: 048
  9. METHOTREXATE. [Concomitant]
     Active Substance: METHOTREXATE
     Dosage: 12.5 MG, WEEKLY
     Route: 048
  10. INFLECTRA [Suspect]
     Active Substance: INFLIXIMAB-DYYB
     Dosage: 600 MG, EVERY 4 WEEKS
     Route: 042
     Dates: start: 20181203
  11. INFLECTRA [Suspect]
     Active Substance: INFLIXIMAB-DYYB
     Dosage: 10 MG/KG 0, 2 AND 6 WEEKS, THEN 5 MG/KG EVERY 4 WEEKS
     Route: 042
     Dates: start: 20190523
  12. HYDROMORPHONE [Concomitant]
     Active Substance: HYDROMORPHONE
     Dosage: 0.5 TO 1 MG EVERY 4 HOURS AS NEEDED
     Route: 048
  13. METHYLPREDNISOLONE. [Concomitant]
     Active Substance: METHYLPREDNISOLONE
     Dosage: 60 MG, DAILY
     Route: 042
  14. PREDNISONE. [Concomitant]
     Active Substance: PREDNISONE
     Dosage: 40 MG, TAPERING
     Route: 048
  15. ALUMINIUM MAGNESIUM HYDROXIDR [Concomitant]
     Dosage: 40 MG, EVERY 6 HOURS
     Route: 048
  16. 5 ASA LP [Concomitant]
     Dosage: 1000 MG, DAILY
     Route: 054
  17. MAGNESIUM SULFATE AND GLUCOSE [Concomitant]
     Dosage: 5 % BAG DAILY
  18. IRON SUCROSE [Concomitant]
     Active Substance: IRON SUCROSE
     Dosage: UNK (IN SODIUM CHLORIDE 0.9%)
     Route: 042
  19. INFLECTRA [Suspect]
     Active Substance: INFLIXIMAB-DYYB
     Dosage: 600 MG, UNK
     Route: 042
     Dates: start: 20181128, end: 20181129
  20. ARGATROBAN. [Concomitant]
     Active Substance: ARGATROBAN
     Dosage: UNK
  21. HYDROMORPHONE [Concomitant]
     Active Substance: HYDROMORPHONE
     Dosage: 0.25 TO 0.5 MG EVERY 2 HOURS AS NEEDED
     Route: 058
  22. ACETAMINOPHEN. [Concomitant]
     Active Substance: ACETAMINOPHEN
     Dosage: 650 MG, 30 MIN BEFORE INFLECTRA INFUSION.
     Route: 048
  23. TENOFOVIR DISOPROXIL FUMARATE. [Concomitant]
     Active Substance: TENOFOVIR DISOPROXIL FUMARATE
     Dosage: 300 MG, 1 TABLET DAILY
     Route: 048
  24. ONDANSETRON [Concomitant]
     Active Substance: ONDANSETRON
     Dosage: 4MG / 2ML
  25. INFLECTRA [Suspect]
     Active Substance: INFLIXIMAB-DYYB
     Dosage: UNK
     Route: 042
     Dates: start: 20190425
  26. TYLENOL [Concomitant]
     Active Substance: ACETAMINOPHEN
     Dosage: 650 MG, DAILY
     Route: 048
  27. CALCIUM CITRATE [Concomitant]
     Active Substance: CALCIUM CITRATE
     Dosage: 1428 MG,2 TABLETS DAILY
  28. METHYLPREDNISOLONE. [Concomitant]
     Active Substance: METHYLPREDNISOLONE
     Dosage: 50 MG, DAILY
     Route: 042
  29. FONDAPARINUX [Concomitant]
     Active Substance: FONDAPARINUX
     Dosage: 2.5 MG/0.5 ML-5 MG (1ML), DAILY
     Route: 058
     Dates: start: 2018
  30. VITAMIN D [COLECALCIFEROL] [Concomitant]
     Active Substance: CHOLECALCIFEROL
     Dosage: 1000 MG, DAILY
     Route: 048
  31. PENTASA [Concomitant]
     Active Substance: MESALAMINE
     Dosage: 4 G, DAILY
     Route: 048

REACTIONS (6)
  - Alopecia [Unknown]
  - Faecal calprotectin decreased [Unknown]
  - Arthralgia [Unknown]
  - Off label use [Unknown]
  - Chronic hepatitis B [Unknown]
  - Musculoskeletal stiffness [Unknown]

NARRATIVE: CASE EVENT DATE: 201904
